FAERS Safety Report 14595423 (Version 7)
Quarter: 2025Q1

REPORT INFORMATION
  Report Type: Spontaneous
  Country: HU (occurrence: HU)
  Receive Date: 20180302
  Receipt Date: 20250327
  Transmission Date: 20250408
  Serious: Yes (Other)
  Sender: TEVA
  Company Number: HU-TEVA-2018-HU-865028

PATIENT
  Age: 18 Year
  Sex: Female

DRUGS (14)
  1. ZINC [Suspect]
     Active Substance: ZINC
     Indication: Ocular rosacea
     Route: 065
  2. ZINC ACETATE [Suspect]
     Active Substance: ZINC ACETATE
     Indication: Ocular rosacea
     Route: 065
  3. DEXAMETHASONE ACETATE [Concomitant]
     Active Substance: DEXAMETHASONE ACETATE
     Indication: Ocular rosacea
     Route: 065
  4. DOXYCYCLINE [Concomitant]
     Active Substance: DOXYCYCLINE
     Indication: Ocular rosacea
     Route: 065
  5. ERYTHROMYCIN [Concomitant]
     Active Substance: ERYTHROMYCIN
     Indication: Ocular rosacea
     Route: 065
  6. FLUOROMETHOLONE [Concomitant]
     Active Substance: FLUOROMETHOLONE
     Indication: Ocular rosacea
     Route: 065
  7. FUSIDIC ACID [Concomitant]
     Active Substance: FUSIDIC ACID
     Indication: Ocular rosacea
     Route: 065
  8. METRONIDAZOLE [Concomitant]
     Active Substance: METRONIDAZOLE
     Indication: Ocular rosacea
     Route: 065
  9. OXYTETRACYCLINE [Concomitant]
     Active Substance: OXYTETRACYCLINE
     Indication: Ocular rosacea
     Route: 065
  10. VITAMIN A PALMITATE [Concomitant]
     Active Substance: VITAMIN A PALMITATE
     Indication: Ocular rosacea
     Route: 065
  11. TETRACYCLINE [Concomitant]
     Active Substance: TETRACYCLINE
     Indication: Ocular rosacea
     Route: 065
  12. TOBRAMYCIN [Concomitant]
     Active Substance: TOBRAMYCIN
     Indication: Ocular rosacea
     Route: 065
  13. INDOMETHACIN [Concomitant]
     Active Substance: INDOMETHACIN
     Indication: Ocular rosacea
     Route: 065
  14. BETAMETHASONE [Concomitant]
     Active Substance: BETAMETHASONE
     Indication: Product used for unknown indication
     Route: 065

REACTIONS (5)
  - Visual impairment [Recovered/Resolved]
  - Maternal exposure during pregnancy [Unknown]
  - Corneal perforation [Recovered/Resolved]
  - Corneal neovascularisation [Recovered/Resolved]
  - Off label use [Unknown]
